FAERS Safety Report 15306948 (Version 1)
Quarter: 2018Q3

REPORT INFORMATION
  Report Type: Other
  Country: TR (occurrence: TR)
  Receive Date: 20180822
  Receipt Date: 20180822
  Transmission Date: 20181010
  Serious: Yes (Hospitalization)
  Sender: FDA-Public Use
  Company Number: TR-B. BRAUN MEDICAL INC.-2054069

PATIENT
  Age: 19 Year
  Sex: Female

DRUGS (1)
  1. LIDOCAINE HYDROCHLORIDE AND DEXTROSE [Suspect]
     Active Substance: DEXTROSE\LIDOCAINE HYDROCHLORIDE

REACTIONS (6)
  - Respiratory depression [None]
  - Trismus [None]
  - Loss of consciousness [None]
  - Hypoxia [None]
  - Oculogyric crisis [None]
  - Epilepsy [None]
